FAERS Safety Report 9887848 (Version 2)
Quarter: 2014Q3

REPORT INFORMATION
  Report Type: Spontaneous
  Country: US (occurrence: US)
  Receive Date: 20140211
  Receipt Date: 20140725
  Transmission Date: 20150326
  Serious: Yes (Hospitalization)
  Sender: FDA-Public Use
  Company Number: US-009507513-1402USA004240

PATIENT
  Sex: Female

DRUGS (1)
  1. NUVARING [Suspect]
     Active Substance: ETHINYL ESTRADIOL\ETONOGESTREL
     Indication: PRODUCT USED FOR UNKNOWN INDICATION
     Dosage: 1 RING, QM
     Route: 067
     Dates: start: 20120426

REACTIONS (10)
  - Deep vein thrombosis [Unknown]
  - Viral infection [Unknown]
  - Hypercoagulation [Unknown]
  - Electrocardiogram abnormal [Unknown]
  - Headache [Unknown]
  - Type 1 diabetes mellitus [Unknown]
  - Liver function test abnormal [Unknown]
  - Nausea [Unknown]
  - May-Thurner syndrome [Unknown]
  - Sinus tachycardia [Unknown]

NARRATIVE: CASE EVENT DATE: 20130329
